FAERS Safety Report 7740270-5 (Version None)
Quarter: 2011Q3

REPORT INFORMATION
  Report Type: 
  Country: None (occurrence: None)
  Receive Date: 20110909
  Receipt Date: 20110829
  Transmission Date: 20111222
  Serious: Yes (Other)
  Sender: FDA-Public Use
  Company Number: US-ROCHE-800768

PATIENT
  Sex: Female

DRUGS (2)
  1. RAD001 [Suspect]
     Route: 065
  2. TRASTUZUMAB [Suspect]
     Route: 065

REACTIONS (12)
  - ANAEMIA [None]
  - NEUTROPENIA [None]
  - DIARRHOEA [None]
  - HYPERGLYCAEMIA [None]
  - INFECTION [None]
  - TRANSAMINASES INCREASED [None]
  - HYPERLIPIDAEMIA [None]
  - FATIGUE [None]
  - THROMBOCYTOPENIA [None]
  - HYPOKALAEMIA [None]
  - MUCOSAL INFLAMMATION [None]
  - LYMPHOPENIA [None]
